FAERS Safety Report 7190903-X (Version None)
Quarter: 2010Q4

REPORT INFORMATION
  Report Type: 
  Country: None (occurrence: None)
  Receive Date: 20101223
  Receipt Date: 20101215
  Transmission Date: 20110411
  Serious: Yes (Hospitalization)
  Sender: FDA-Public Use
  Company Number: AU-B.I. PHARMACEUTICALS,INC./RIDGEFIELD-2010-DE-06969GD

PATIENT

DRUGS (1)
  1. CLONIDINE HCL [Suspect]

REACTIONS (2)
  - HYPERTENSIVE CRISIS [None]
  - WITHDRAWAL HYPERTENSION [None]
